FAERS Safety Report 6028110-6 (Version None)
Quarter: 2008Q4

REPORT INFORMATION
  Report Type: 
  Country: None (occurrence: None)
  Receive Date: 20081231
  Receipt Date: 20081231
  Transmission Date: 20090506
  Serious: Yes (Hospitalization)
  Sender: FDA-Public Use
  Company Number: None

PATIENT
  Sex: Female
  Weight: 68.0396 kg

DRUGS (1)
  1. CEFTRIAXONE [Suspect]
     Indication: BACTERAEMIA
     Dosage: 2GM IV
     Route: 042
     Dates: start: 20081204, end: 20081228

REACTIONS (2)
  - PRURITUS [None]
  - URTICARIA [None]
